FAERS Safety Report 20639338 (Version 1)
Quarter: 2022Q1

REPORT INFORMATION
  Report Type: Other
  Country: GB (occurrence: GB)
  Receive Date: 20220326
  Receipt Date: 20220326
  Transmission Date: 20220423
  Serious: No
  Sender: FDA-Public Use
  Company Number: None

PATIENT
  Age: 33 Year
  Sex: Female
  Weight: 32 kg

DRUGS (5)
  1. SERTRALINE HYDROCHLORIDE [Suspect]
     Active Substance: SERTRALINE HYDROCHLORIDE
     Indication: Arthralgia
     Dosage: 50 MILLIGRAM
     Route: 048
  2. SERTRALINE HYDROCHLORIDE [Suspect]
     Active Substance: SERTRALINE HYDROCHLORIDE
     Dosage: 100 MILLIGRAM
     Route: 048
  3. DEPO-PROVERA [Concomitant]
     Active Substance: MEDROXYPROGESTERONE ACETATE
     Indication: Product used for unknown indication
     Dosage: UNK, ONCE EVERY 12 WEEKS NOTES FOR PATIENT: THIS IS A LONG-ACTING CONTRACEPTIVE
     Route: 065
     Dates: start: 20220119
  4. HYDROCORTISONE [Concomitant]
     Active Substance: HYDROCORTISONE
     Indication: Product used for unknown indication
     Dosage: 2.5 MILLIGRAM, QID (1 TABLET TO DISSOLVE BY THE MOUTH ULCER FOUR TIMES A DAY WHEN REQUIRED)
     Route: 065
     Dates: start: 20220309
  5. ROPINIROLE [Concomitant]
     Active Substance: ROPINIROLE
     Indication: Product used for unknown indication
     Dosage: 250 MICROGRAM, 1-2 AT NIGHT
     Route: 065
     Dates: start: 20220309

REACTIONS (1)
  - Restless legs syndrome [Recovering/Resolving]

NARRATIVE: CASE EVENT DATE: 20211001
